FAERS Safety Report 9824005 (Version 2)
Quarter: 2014Q1

REPORT INFORMATION
  Report Type: Spontaneous
  Country: US (occurrence: US)
  Receive Date: 20140116
  Receipt Date: 20140116
  Transmission Date: 20141002
  Serious: Yes (Hospitalization)
  Sender: FDA-Public Use
  Company Number: US-GILEAD-2011-0038187

PATIENT
  Sex: Female
  Weight: 92.08 kg

DRUGS (2)
  1. LETAIRIS [Suspect]
     Indication: PULMONARY HYPERTENSION
     Route: 048
     Dates: start: 20100715
  2. REVATIO [Concomitant]

REACTIONS (2)
  - Dyspnoea [Recovering/Resolving]
  - Nasopharyngitis [Unknown]
